FAERS Safety Report 6880943-X (Version None)
Quarter: 2010Q3

REPORT INFORMATION
  Report Type: 
  Country: None (occurrence: None)
  Receive Date: 20100728
  Receipt Date: 20100721
  Transmission Date: 20110219
  Serious: Yes (Hospitalization, Other)
  Sender: FDA-Public Use
  Company Number: BR-ABBOTT-09P-020-0612415-00

PATIENT
  Sex: Female
  Weight: 62 kg

DRUGS (8)
  1. HUMIRA [Suspect]
     Indication: RHEUMATOID ARTHRITIS
     Route: 058
  2. HUMIRA [Suspect]
     Route: 058
     Dates: start: 20090701, end: 20090801
  3. HUMIRA [Suspect]
     Route: 058
     Dates: start: 20091001, end: 20091201
  4. TORLOS [Concomitant]
     Indication: HYPERTENSION
     Route: 048
  5. CORTICORTEN [Concomitant]
     Indication: RHEUMATOID ARTHRITIS
     Route: 048
  6. CAFFEINE / CARISOPRODOL / DICLOFENAC SODIUM/ PARACETAMOL (TORSILAX) [Concomitant]
     Indication: PAIN
     Route: 048
  7. VOLTAREN [Concomitant]
     Indication: PAIN
     Route: 048
  8. METHOTREXATE [Concomitant]
     Indication: RHEUMATOID ARTHRITIS
     Route: 048

REACTIONS (4)
  - DEVICE FAILURE [None]
  - PROSTHESIS IMPLANTATION [None]
  - PURULENT DISCHARGE [None]
  - WOUND INFECTION BACTERIAL [None]
